FAERS Safety Report 6698241-6 (Version None)
Quarter: 2010Q2

REPORT INFORMATION
  Report Type: 
  Country: None (occurrence: None)
  Receive Date: 20100427
  Receipt Date: 20100422
  Transmission Date: 20101027
  Serious: Yes (Hospitalization)
  Sender: FDA-Public Use
  Company Number: BR-BRISTOL-MYERS SQUIBB COMPANY-15075369

PATIENT
  Age: 63 Year
  Sex: Female
  Weight: 63 kg

DRUGS (5)
  1. ORENCIA [Suspect]
     Indication: RHEUMATOID ARTHRITIS
  2. MABTHERA [Suspect]
     Indication: RHEUMATOID ARTHRITIS
     Dosage: LAST INF-4FEB10 TOOK IT IN JUL09, TAKEN 4YRS AGO
  3. ACETAMINOPHEN + CAFFEINE [Concomitant]
  4. DICLOFENAC SODIUM [Concomitant]
  5. CARISOPRODOL [Concomitant]

REACTIONS (5)
  - BACK PAIN [None]
  - DRUG INEFFECTIVE [None]
  - GAIT DISTURBANCE [None]
  - HIP SURGERY [None]
  - WEIGHT DECREASED [None]
